FAERS Safety Report 17980507 (Version 5)
Quarter: 2021Q1

REPORT INFORMATION
  Report Type: Spontaneous
  Country: US (occurrence: US)
  Receive Date: 20200704
  Receipt Date: 20210119
  Transmission Date: 20210419
  Serious: Yes (Hospitalization, Other)
  Sender: FDA-Public Use
  Company Number: US-CADILA HEALTHCARE LIMITED-US-ZYDUS-052956

PATIENT

DRUGS (1)
  1. BOSENTAN 125 MG TABLETS [Suspect]
     Active Substance: BOSENTAN
     Indication: PULMONARY ARTERIAL HYPERTENSION
     Dosage: 125 MILLIGRAM, BID
     Route: 048
     Dates: start: 2020

REACTIONS (5)
  - Memory impairment [Unknown]
  - Back pain [Unknown]
  - Dementia Alzheimer^s type [Unknown]
  - Malaise [Recovered/Resolved]
  - Scoliosis surgery [Recovered/Resolved]

NARRATIVE: CASE EVENT DATE: 2020
